FAERS Safety Report 9931536 (Version 4)
Quarter: 2014Q2

REPORT INFORMATION
  Report Type: Spontaneous
  Country: FR (occurrence: FR)
  Receive Date: 20140228
  Receipt Date: 20140430
  Transmission Date: 20141212
  Serious: Yes (Other)
  Sender: FDA-Public Use
  Company Number: FR-ASTRAZENECA-2014SE12448

PATIENT
  Age: 15036 Day
  Sex: Female
  Weight: 74 kg

DRUGS (11)
  1. XEROQUEL [Suspect]
     Indication: BIPOLAR DISORDER
     Route: 048
     Dates: start: 201401
  2. XEROQUEL [Suspect]
     Indication: BIPOLAR DISORDER
     Route: 048
     Dates: end: 20140214
  3. LANZOR [Concomitant]
     Route: 048
  4. ALTEIS DUO [Concomitant]
     Route: 048
  5. VENTOLINE [Concomitant]
     Route: 055
  6. INNOVAIR [Concomitant]
     Route: 055
  7. SERESTA [Concomitant]
     Route: 048
  8. IMOVANE [Concomitant]
     Route: 048
  9. LEVOTHYROX [Concomitant]
     Indication: HYPOTHYROIDISM
     Route: 048
  10. APRANAX [Concomitant]
     Route: 048
  11. MIZOLLEN [Concomitant]
     Route: 048

REACTIONS (5)
  - Abnormal weight gain [Recovering/Resolving]
  - Hyperphagia [Recovered/Resolved]
  - Arthralgia [Unknown]
  - Oedema peripheral [Recovered/Resolved]
  - Face oedema [Recovered/Resolved]
